FAERS Safety Report 9934222 (Version 1)
Quarter: 2014Q1

REPORT INFORMATION
  Report Type: Spontaneous
  Country: JP (occurrence: JP)
  Receive Date: 20140228
  Receipt Date: 20140228
  Transmission Date: 20141002
  Serious: Yes (Hospitalization, Other)
  Sender: FDA-Public Use
  Company Number: JP-CUBIST PHARMACEUTICAL, INC.-2014CBST000273

PATIENT
  Sex: 0

DRUGS (3)
  1. CUBICIN [Suspect]
     Indication: MASTITIS
     Dosage: UNK UNK, UNK
     Route: 065
  2. CUBICIN [Suspect]
     Indication: STAPHYLOCOCCAL INFECTION
  3. CUBICIN [Suspect]
     Indication: OFF LABEL USE

REACTIONS (2)
  - Breast abscess [Recovering/Resolving]
  - Drug ineffective for unapproved indication [Unknown]
